FAERS Safety Report 5030925-8 (Version None)
Quarter: 2006Q2

REPORT INFORMATION
  Report Type: 
  Country: None (occurrence: None)
  Receive Date: 20060619
  Receipt Date: 20060609
  Transmission Date: 20061013
  Serious: Yes (Hospitalization)
  Sender: FDA-Public Use
  Company Number: 2006-01438

PATIENT
  Age: 61 Year
  Sex: 0

DRUGS (2)
  1. VELCADE [Suspect]
     Indication: MULTIPLE MYELOMA
  2. PANTOZOL (PANTOPRAZOLE SODIUM) [Concomitant]

REACTIONS (1)
  - CHEST PAIN [None]
